FAERS Safety Report 15323404 (Version 2)
Quarter: 2018Q3

REPORT INFORMATION
  Report Type: Report from Study
  Country: US (occurrence: US)
  Receive Date: 20180827
  Receipt Date: 20180928
  Transmission Date: 20181010
  Serious: Yes (Hospitalization)
  Sender: FDA-Public Use
  Company Number: US-GILEAD-2018-0359209

PATIENT
  Age: 38 Year
  Sex: Female

DRUGS (9)
  1. ORKAMBI [Suspect]
     Active Substance: IVACAFTOR\LUMACAFTOR
     Indication: CYSTIC FIBROSIS
     Dosage: 2 DF, BID
     Route: 048
     Dates: start: 20170824
  2. ZENPEP [Suspect]
     Active Substance: PANCRELIPASE AMYLASE\PANCRELIPASE LIPASE\PANCRELIPASE PROTEASE
     Indication: CYSTIC FIBROSIS
     Dosage: 5 DF, TID
     Route: 048
     Dates: start: 20180320
  3. CAPECITABINE. [Suspect]
     Active Substance: CAPECITABINE
     Indication: NEOPLASM MALIGNANT
     Dosage: 3 DF, BID, 7 DAYS ON AND 7 DAYS OFF
     Route: 048
     Dates: start: 20180327
  4. HUMALOG [Concomitant]
     Active Substance: INSULIN LISPRO
  5. LONSURF [Concomitant]
     Active Substance: TIPIRACIL HYDROCHLORIDE\TRIFLURIDINE
  6. PULMOZYME [Suspect]
     Active Substance: DORNASE ALFA
     Indication: CYSTIC FIBROSIS
     Dosage: 2.5 ML, QD
     Route: 055
     Dates: start: 20180316
  7. ESTRADIOL. [Concomitant]
     Active Substance: ESTRADIOL
  8. AZTREONAM LYSINE [Suspect]
     Active Substance: AZTREONAM LYSINE
     Indication: CYSTIC FIBROSIS
     Dosage: 75 MG, TID, 28 DAYS ON 28 DAYS OFF
     Route: 055
     Dates: start: 20180320
  9. PROAIR HFA [Concomitant]
     Active Substance: ALBUTEROL SULFATE

REACTIONS (5)
  - Nasopharyngitis [Unknown]
  - Lower respiratory tract infection [Unknown]
  - Fatigue [Not Recovered/Not Resolved]
  - Pyrexia [Not Recovered/Not Resolved]
  - Decreased appetite [Not Recovered/Not Resolved]

NARRATIVE: CASE EVENT DATE: 201808
